FAERS Safety Report 23819785 (Version 1)
Quarter: 2024Q2

REPORT INFORMATION
  Report Type: Spontaneous
  Country: US (occurrence: None)
  Receive Date: 20240503
  Receipt Date: 20240503
  Transmission Date: 20240716
  Serious: Yes (Hospitalization)
  Sender: FDA-Public Use
  Company Number: None

PATIENT
  Sex: Female

DRUGS (2)
  1. COSENTYX [Suspect]
     Active Substance: SECUKINUMAB
     Indication: Psoriatic arthropathy
     Dosage: FREQUENCY : AS DIRECTED;?
     Route: 058
  2. HUMIRA PEN (2/BOX)(ABB) [Concomitant]

REACTIONS (4)
  - Wheezing [None]
  - Bronchitis [None]
  - Urinary tract infection [None]
  - Pneumonia [None]
